FAERS Safety Report 19194914 (Version 2)
Quarter: 2021Q2

REPORT INFORMATION
  Report Type: Spontaneous
  Country: SE (occurrence: SE)
  Receive Date: 20210429
  Receipt Date: 20210518
  Transmission Date: 20210717
  Serious: Yes (Hospitalization)
  Sender: FDA-Public Use
  Company Number: SE-PFIZER INC-2021467430

PATIENT
  Age: 73 Year
  Sex: Female

DRUGS (2)
  1. OESTRING [Suspect]
     Active Substance: ESTRADIOL
     Indication: URINARY INCONTINENCE
  2. OESTRING [Suspect]
     Active Substance: ESTRADIOL
     Indication: UTERINE DISORDER
     Dosage: STARTED WITH ESTRADIOL SEVERAL YEARS AGO
     Dates: end: 202104

REACTIONS (2)
  - Off label use [Unknown]
  - Thrombosis [Recovered/Resolved]

NARRATIVE: CASE EVENT DATE: 202104
